FAERS Safety Report 9150418 (Version 6)
Quarter: 2014Q1

REPORT INFORMATION
  Report Type: Spontaneous
  Country: GB (occurrence: None)
  Receive Date: 20130215
  Receipt Date: 20140128
  Transmission Date: 20141002
  Serious: Yes (Hospitalization, Other)
  Sender: FDA-Public Use
  Company Number: 2013GB001088

PATIENT
  Age: 66 Year
  Sex: Male
  Weight: 60.2 kg

DRUGS (9)
  1. PONATINIB [Suspect]
     Indication: CHRONIC MYELOID LEUKAEMIA
     Route: 048
     Dates: start: 20110531
  2. SIMVASTATIN (SIMVASTATIN) [Concomitant]
  3. AMLODIPINE (AMLODIPINE) [Concomitant]
  4. OMEPRAZOLE (OMEPRAZOLE) [Concomitant]
  5. ASPIRIN (ASPIRIN) [Concomitant]
  6. CALCEOS (CALCIUM CARBONATE, COLECALCIFEROL) [Concomitant]
  7. DOXAZOSIN (DOXAZOSIN) [Concomitant]
  8. TIOTROPIUM BROMIDE (TIOTROPIUM BROMIDE) [Concomitant]
  9. SERETIDE [Concomitant]

REACTIONS (6)
  - Peripheral vascular disorder [None]
  - Peripheral artery stenosis [None]
  - Peripheral artery stenosis [None]
  - Procedural pain [None]
  - Femoral artery occlusion [None]
  - Peripheral arterial occlusive disease [None]
